FAERS Safety Report 7022953-8 (Version None)
Quarter: 2010Q3

REPORT INFORMATION
  Report Type: 
  Country: None (occurrence: None)
  Receive Date: 20100916
  Receipt Date: 20100719
  Transmission Date: 20110219
  Serious: No
  Sender: FDA-Public Use
  Company Number: DKLU1063701 (0)

PATIENT
  Age: 21 Year
  Sex: Female

DRUGS (1)
  1. SABRIL [Suspect]
     Indication: INFANTILE SPASMS
     Dosage: 750 MG MILLIGRAM (S), 2 IN 1 D, ORAL
     Route: 048

REACTIONS (4)
  - ABDOMINAL PAIN UPPER [None]
  - ACCIDENTAL EXPOSURE [None]
  - CHEST PAIN [None]
  - MEDICATION ERROR [None]
